FAERS Safety Report 10524054 (Version 1)
Quarter: 2014Q4

REPORT INFORMATION
  Report Type: Spontaneous
  Country: US (occurrence: None)
  Receive Date: 20141015
  Receipt Date: 20141015
  Transmission Date: 20150528
  Serious: Yes (Other)
  Sender: FDA-Public Use
  Company Number: None

PATIENT
  Age: 6 Year
  Sex: Male
  Weight: 26.6 kg

DRUGS (1)
  1. TOCILIZUMAB [Suspect]
     Active Substance: TOCILIZUMAB
     Indication: JUVENILE IDIOPATHIC ARTHRITIS
     Dosage: 240 MG BIWEEKLY IV
     Route: 042
     Dates: start: 20141003

REACTIONS (5)
  - Abdominal pain [None]
  - Infusion related reaction [None]
  - Chest pain [None]
  - Oxygen saturation decreased [None]
  - Throat tightness [None]

NARRATIVE: CASE EVENT DATE: 20141003
